FAERS Safety Report 21674948 (Version 2)
Quarter: 2022Q4

REPORT INFORMATION
  Report Type: Spontaneous
  Country: FR (occurrence: FR)
  Receive Date: 20221202
  Receipt Date: 20221220
  Transmission Date: 20230112
  Serious: Yes (Other)
  Sender: FDA-Public Use
  Company Number: FR-BIOGARAN-B22001634

PATIENT
  Age: 36 Year
  Sex: Female
  Weight: 45 kg

DRUGS (5)
  1. AZITHROMYCIN [Suspect]
     Active Substance: AZITHROMYCIN
     Indication: Product used for unknown indication
     Dosage: 2 TABLETS PER DAY
     Route: 048
     Dates: start: 20220928
  2. PREDNISOLONE [Concomitant]
     Active Substance: PREDNISOLONE
     Indication: Product used for unknown indication
     Dosage: 2 TABLETS PER DAY
     Route: 048
     Dates: start: 20220929
  3. BUDESONIDE [Concomitant]
     Active Substance: BUDESONIDE
     Indication: Product used for unknown indication
     Dosage: 1 INHALATION THRICE DAILY
     Dates: start: 20220929, end: 20221002
  4. DAFALGAN [Concomitant]
     Active Substance: ACETAMINOPHEN
     Indication: Product used for unknown indication
     Dosage: 3 DOSAGE FORM, QD,TID
     Route: 048
     Dates: start: 20220929
  5. ALBUTEROL [Concomitant]
     Active Substance: ALBUTEROL
     Indication: Product used for unknown indication
     Dosage: 1 INHALATION THRICE DAILY
     Dates: start: 20220929, end: 20221002

REACTIONS (1)
  - Ototoxicity [Not Recovered/Not Resolved]

NARRATIVE: CASE EVENT DATE: 20220929
